FAERS Safety Report 8882419 (Version 1)
Quarter: 2012Q4

REPORT INFORMATION
  Report Type: Report from Study
  Country: TW (occurrence: TW)
  Receive Date: 20121102
  Receipt Date: 20121102
  Transmission Date: 20130627
  Serious: Yes (Hospitalization, Other)
  Sender: FDA-Public Use
  Company Number: PHHO2009TW14502

PATIENT
  Age: 78 Year
  Sex: Male
  Weight: 66.3 kg

DRUGS (9)
  1. ALISKIREN [Suspect]
     Indication: ESSENTIAL HYPERTENSION
     Route: 048
     Dates: start: 20090911, end: 20100905
  2. ALISKIREN [Suspect]
     Dosage: No treatment
     Dates: start: 20100906, end: 20100913
  3. ALISKIREN [Suspect]
     Route: 048
     Dates: start: 20100914
  4. LEVOPHED [Concomitant]
  5. ISOSORBIDE MONONITRATE [Concomitant]
  6. FUROSEMIDE [Concomitant]
  7. WARFARIN [Concomitant]
  8. LOSARTAN POTASSIUM [Concomitant]
  9. CARVEDILOL [Concomitant]

REACTIONS (14)
  - Atrial fibrillation [Unknown]
  - Bundle branch block left [Unknown]
  - Cardiac failure congestive [Unknown]
  - Dyspnoea exertional [Recovering/Resolving]
  - Dyspnoea [Recovering/Resolving]
  - Oedema peripheral [Recovering/Resolving]
  - Urine output decreased [Recovering/Resolving]
  - Disease progression [Recovering/Resolving]
  - Cardiac hypertrophy [Recovering/Resolving]
  - Pleural effusion [Recovering/Resolving]
  - Hypotension [Recovering/Resolving]
  - Polyuria [Recovering/Resolving]
  - Dizziness [Recovering/Resolving]
  - Hypophagia [Recovering/Resolving]
